FAERS Safety Report 7954803-7 (Version None)
Quarter: 2011Q4

REPORT INFORMATION
  Report Type: 
  Country: None (occurrence: None)
  Receive Date: 20111202
  Receipt Date: 20111004
  Transmission Date: 20120403
  Serious: Yes (Life-Threatening, Hospitalization, Disabling, Other)
  Sender: FDA-Public Use
  Company Number: US-ROCHE-785846

PATIENT
  Age: 43 Year
  Sex: Male

DRUGS (5)
  1. ACETAMINOPHEN [Concomitant]
     Indication: HEADACHE
  2. PEGINTERFERON ALFA-2A [Suspect]
     Indication: HEPATITIS C
     Dosage: DAILY DOSE: 25.7143 MCG
     Route: 058
     Dates: start: 20110404, end: 20110608
  3. COPEGUS [Suspect]
     Indication: HEPATITIS C
     Route: 048
     Dates: start: 20110404, end: 20110608
  4. BLINDED TEGOBUVIR [Suspect]
     Indication: HEPATITIS C
     Dosage: DOSE BLINDED
     Route: 048
     Dates: start: 20110404, end: 20110608
  5. BLINDED GS 9256 (NS3 PROTEASE INHIBITOR) [Suspect]
     Indication: HEPATITIS C
     Dosage: DOSE BLINDED
     Route: 048
     Dates: start: 20110404, end: 20110602

REACTIONS (7)
  - CELLULITIS [None]
  - STAPHYLOCOCCAL BACTERAEMIA [None]
  - RENAL FAILURE ACUTE [None]
  - JAUNDICE [None]
  - ANAEMIA [None]
  - URINARY TRACT INFECTION [None]
  - ARTHRITIS BACTERIAL [None]
